FAERS Safety Report 4357216-2 (Version None)
Quarter: 2004Q2

REPORT INFORMATION
  Report Type: 
  Country: None (occurrence: None)
  Receive Date: 20040507
  Receipt Date: 20040416
  Transmission Date: 20050107
  Serious: Yes (Death, Hospitalization, Other)
  Sender: FDA-Public Use
  Company Number: USA040465181

PATIENT
  Age: 84 Year
  Sex: Male

DRUGS (4)
  1. FORTEO [Suspect]
     Indication: BONE DISORDER
     Dates: start: 20040130, end: 20040218
  2. FORTEO [Suspect]
     Indication: SPINAL FRACTURE
     Dates: start: 20040130, end: 20040218
  3. INSULIN [Concomitant]
  4. CORTISONE [Concomitant]

REACTIONS (8)
  - ABDOMINAL DISTENSION [None]
  - BACK PAIN [None]
  - HAEMATEMESIS [None]
  - HAEMATOCHEZIA [None]
  - HAEMORRHAGE [None]
  - MEDICATION ERROR [None]
  - MYOCARDIAL INFARCTION [None]
  - PHARMACEUTICAL PRODUCT COMPLAINT [None]
